FAERS Safety Report 20944764 (Version 4)
Quarter: 2024Q1

REPORT INFORMATION
  Report Type: Report from Study
  Country: US (occurrence: US)
  Receive Date: 20220610
  Receipt Date: 20240110
  Transmission Date: 20240409
  Serious: Yes (Other)
  Sender: FDA-Public Use
  Company Number: US-002147023-NVSC2022US133401

PATIENT
  Sex: Female

DRUGS (1)
  1. TASIGNA [Suspect]
     Active Substance: NILOTINIB
     Indication: Product used for unknown indication
     Dosage: UNK
     Route: 065

REACTIONS (9)
  - Cerebrovascular accident [Unknown]
  - Blindness unilateral [Unknown]
  - Gallbladder disorder [Unknown]
  - Vision blurred [Unknown]
  - Diplopia [Unknown]
  - Arthropathy [Unknown]
  - Neuralgia [Unknown]
  - Bronchitis [Unknown]
  - Arthralgia [Unknown]
